FAERS Safety Report 14226446 (Version 3)
Quarter: 2018Q2

REPORT INFORMATION
  Report Type: Report from Study
  Country: JP (occurrence: JP)
  Receive Date: 20171127
  Receipt Date: 20180430
  Transmission Date: 20180711
  Serious: Yes (Death, Other)
  Sender: FDA-Public Use
  Company Number: JP-BRISTOL-MYERS SQUIBB COMPANY-BMS-2017-105716

PATIENT
  Age: 71 Year
  Sex: Male
  Weight: 52 kg

DRUGS (5)
  1. ELOTUZUMAB. [Suspect]
     Active Substance: ELOTUZUMAB
     Indication: PLASMA CELL MYELOMA
     Dosage: 0.1 MG/KG, QWK
     Route: 041
     Dates: start: 20161124, end: 20161215
  2. LENALIDOMIDE [Suspect]
     Active Substance: LENALIDOMIDE
     Indication: PLASMA CELL MYELOMA
     Dosage: 25 MG, QD
     Route: 048
     Dates: start: 20161124, end: 20161214
  3. DEXAMETHASONE. [Suspect]
     Active Substance: DEXAMETHASONE
     Indication: PLASMA CELL MYELOMA
     Dosage: 8 MG, QWK
     Route: 041
     Dates: start: 20161124, end: 20161215
  4. DEXAMETHASONE. [Suspect]
     Active Substance: DEXAMETHASONE
     Indication: PLASMA CELL MYELOMA
     Dosage: 28 MG, QWK
     Route: 048
     Dates: start: 20161124, end: 20161215
  5. ACICLOVIR [Suspect]
     Active Substance: ACYCLOVIR
     Indication: PLASMA CELL MYELOMA
     Dosage: 200 MG, QD
     Route: 065
     Dates: end: 20161221

REACTIONS (1)
  - Death [Fatal]
